FAERS Safety Report 5141235-2 (Version None)
Quarter: 2006Q4

REPORT INFORMATION
  Report Type: 
  Country: None (occurrence: None)
  Receive Date: 20061101
  Receipt Date: 20060919
  Transmission Date: 20070319
  Serious: Yes (Other)
  Sender: FDA-Public Use
  Company Number: US-ELI_LILLY_AND_COMPANY-US200609004775

PATIENT
  Sex: Female

DRUGS (4)
  1. HUMALOG [Suspect]
     Indication: DIABETES MELLITUS
     Dosage: UNK, UNKNOWN
     Dates: start: 20020101
  2. LANTUS [Concomitant]
     Dosage: 84 U, UNKNOWN
  3. METFORMIN HCL [Concomitant]
     Dosage: 2000 MG, UNKNOWN
  4. AMARYL [Concomitant]
     Dosage: UNK, UNKNOWN

REACTIONS (8)
  - ARTHRITIS [None]
  - BLOOD GLUCOSE INCREASED [None]
  - CARDIAC FAILURE [None]
  - HYPOKINESIA [None]
  - NEUROPATHY [None]
  - OVERWEIGHT [None]
  - WEIGHT INCREASED [None]
  - WHITE BLOOD CELL COUNT DECREASED [None]
